FAERS Safety Report 6844285-0 (Version None)
Quarter: 2010Q3

REPORT INFORMATION
  Report Type: 
  Country: None (occurrence: None)
  Receive Date: 20100715
  Receipt Date: 20100703
  Transmission Date: 20110219
  Serious: Yes (Other)
  Sender: FDA-Public Use
  Company Number: US-PFIZER INC-2002065286

PATIENT
  Sex: Male
  Weight: 77.1 kg

DRUGS (10)
  1. VIAGRA [Suspect]
     Indication: ERECTILE DYSFUNCTION
     Dosage: 50 MG, AS NEEDED
     Route: 048
  2. VIAGRA [Suspect]
     Dosage: 100 MG, AS NEEDED
     Route: 048
  3. VIAGRA [Suspect]
     Dosage: 100 MG, UNK
  4. METFORMIN HCL [Concomitant]
     Route: 048
  5. REPAGLINIDE [Concomitant]
     Route: 048
  6. ACTOS [Concomitant]
     Indication: DIABETES MELLITUS
     Dosage: UNK
     Route: 048
  7. LANTUS [Concomitant]
     Indication: DIABETES MELLITUS
     Dosage: 30 IU, DAILY
     Route: 058
  8. RAMIPRIL [Concomitant]
     Indication: CARDIAC DISORDER
     Dosage: 10 MG, DAILY
     Route: 048
  9. METOPROLOL [Concomitant]
     Dosage: 50 MG, DAILY
     Route: 048
  10. TAMSULOSIN [Concomitant]
     Dosage: 0.4 MG, DAILY
     Route: 048

REACTIONS (2)
  - BLOOD TESTOSTERONE DECREASED [None]
  - DRUG INEFFECTIVE [None]
